FAERS Safety Report 8966196 (Version 1)
Quarter: 2012Q4

REPORT INFORMATION
  Report Type: 
  Country: CA (occurrence: CA)
  Receive Date: 20121217
  Receipt Date: 20121217
  Transmission Date: 20130627
  Serious: Yes (Hospitalization)
  Sender: FDA-Public Use
  Company Number: CA-AMGEN-CANSP2012079558

PATIENT
  Sex: Female

DRUGS (3)
  1. ENBREL [Suspect]
     Indication: PRODUCT USED FOR UNKNOWN INDICATION
     Dosage: UNK
     Route: 058
     Dates: start: 2009
  2. SYNTHROID [Concomitant]
     Indication: THYROID DISORDER
     Dosage: UNK
  3. PREVACID [Concomitant]
     Indication: DYSPEPSIA
     Dosage: UNK

REACTIONS (4)
  - Pneumonia [Unknown]
  - Arthralgia [Unknown]
  - Joint swelling [Unknown]
  - Bronchitis [Unknown]
